FAERS Safety Report 8956266 (Version 1)
Quarter: 2012Q4

REPORT INFORMATION
  Report Type: 
  Country: US (occurrence: US)
  Receive Date: 20121210
  Receipt Date: 20121210
  Transmission Date: 20130627
  Serious: Yes (Hospitalization, Other)
  Sender: FDA-Public Use
  Company Number: US-NOVOPROD-362654

PATIENT
  Age: 45 Year
  Sex: Male
  Weight: 101.6 kg

DRUGS (1)
  1. VICTOZA [Suspect]
     Indication: TYPE 2 DIABETES MELLITUS
     Dosage: 0.6mg
     Route: 058
     Dates: start: 20121010, end: 20121014

REACTIONS (6)
  - Cholelithiasis [Unknown]
  - Vomiting [Recovered/Resolved]
  - Diarrhoea [Unknown]
  - Nausea [Recovered/Resolved]
  - Transaminases increased [Unknown]
  - Hyperbilirubinaemia [Recovered/Resolved]
